FAERS Safety Report 16791470 (Version 1)
Quarter: 2019Q3

REPORT INFORMATION
  Report Type: Spontaneous
  Country: US (occurrence: US)
  Receive Date: 20190910
  Receipt Date: 20190910
  Transmission Date: 20191005
  Serious: No
  Sender: FDA-Public Use
  Company Number: US-009507513-1909USA003115

PATIENT
  Sex: Female

DRUGS (1)
  1. FOLLISTIM AQ [Suspect]
     Active Substance: FOLLITROPIN
     Indication: INFERTILITY FEMALE
     Dosage: 150 DOSAGE FORM, QD 10-14 DAYS, (STRENGTH: 900 IU/1.8 ML)
     Route: 058
     Dates: start: 20190823

REACTIONS (1)
  - Injection site reaction [Unknown]
